FAERS Safety Report 4537010-X (Version None)
Quarter: 2004Q4

REPORT INFORMATION
  Report Type: 
  Country: None (occurrence: None)
  Receive Date: 20041220
  Receipt Date: 20041203
  Transmission Date: 20050328
  Serious: Yes (Life-Threatening, Hospitalization)
  Sender: FDA-Public Use
  Company Number: 9381

PATIENT
  Age: 81 Year
  Sex: Female

DRUGS (5)
  1. AMIODARONE [Suspect]
     Indication: ATRIAL FIBRILLATION
     Dosage: 200 MG PO
     Route: 048
     Dates: start: 20040813, end: 20041105
  2. FRUSEMIDE [Concomitant]
  3. WARFARIN SODIUM [Concomitant]
  4. ATORVASTATIN [Concomitant]
  5. SENNA [Concomitant]

REACTIONS (1)
  - PNEUMONITIS [None]
